FAERS Safety Report 13942199 (Version 1)
Quarter: 2017Q3

REPORT INFORMATION
  Report Type: Spontaneous
  Country: IT (occurrence: IT)
  Receive Date: 20170907
  Receipt Date: 20170907
  Transmission Date: 20171127
  Serious: Yes (Other)
  Sender: FDA-Public Use
  Company Number: IT-BAYER-2017-165222

PATIENT
  Age: 63 Year
  Sex: Male

DRUGS (2)
  1. CIPROXIN 500 MG [Suspect]
     Active Substance: CIPROFLOXACIN
     Indication: INFECTION
     Dosage: 500 MG, PRN
     Route: 048
     Dates: start: 20170817, end: 20170822
  2. IOPAMIRO [Suspect]
     Active Substance: IOPAMIDOL
     Indication: DIAGNOSTIC PROCEDURE
     Dosage: 1 DF, ONCE
     Route: 042
     Dates: start: 20170822, end: 20170822

REACTIONS (2)
  - Lymphadenopathy [Unknown]
  - Localised oedema [Unknown]

NARRATIVE: CASE EVENT DATE: 20170823
